FAERS Safety Report 17295934 (Version 1)
Quarter: 2020Q1

REPORT INFORMATION
  Report Type: Report from Study
  Country: US (occurrence: US)
  Receive Date: 20200121
  Receipt Date: 20200121
  Transmission Date: 20200409
  Serious: Yes (Other)
  Sender: FDA-Public Use
  Company Number: US-ROCHE-2525760

PATIENT
  Sex: Male

DRUGS (1)
  1. VALCYTE [Suspect]
     Active Substance: VALGANCICLOVIR HYDROCHLORIDE
     Indication: HEART TRANSPLANT
     Dosage: 1 TAB BY MOUTH TWICE DAILY
     Route: 048

REACTIONS (2)
  - Paralysis [Unknown]
  - Malaise [Unknown]
